FAERS Safety Report 4732745-8 (Version None)
Quarter: 2005Q3

REPORT INFORMATION
  Report Type: 
  Country: None (occurrence: None)
  Receive Date: 20050803
  Receipt Date: 20050627
  Transmission Date: 20060218
  Serious: Yes (Other)
  Sender: FDA-Public Use
  Company Number: US-GLAXOSMITHKLINE-A0564321A

PATIENT
  Sex: Male

DRUGS (3)
  1. PAXIL [Suspect]
     Indication: DEPRESSION
     Dosage: 60MG PER DAY
     Route: 048
  2. BENZODIAZEPIN [Concomitant]
  3. KLONOPIN [Concomitant]

REACTIONS (14)
  - CRYING [None]
  - DEPRESSED MOOD [None]
  - DEPRESSION [None]
  - DRUG WITHDRAWAL SYNDROME [None]
  - EMOTIONAL DISORDER [None]
  - INSOMNIA [None]
  - INTENTIONAL SELF-INJURY [None]
  - LOSS OF LIBIDO [None]
  - MOOD SWINGS [None]
  - NIGHT SWEATS [None]
  - SEXUAL DYSFUNCTION [None]
  - SKIN LACERATION [None]
  - SLEEP TERROR [None]
  - THINKING ABNORMAL [None]
